FAERS Safety Report 9649650 (Version 3)
Quarter: 2014Q1

REPORT INFORMATION
  Report Type: Spontaneous
  Country: US (occurrence: US)
  Receive Date: 20131028
  Receipt Date: 20140108
  Transmission Date: 20141002
  Serious: Yes (Hospitalization, Other)
  Sender: FDA-Public Use
  Company Number: US-009507513-1310USA009297

PATIENT
  Sex: Female

DRUGS (3)
  1. DULERA [Suspect]
     Indication: ASTHMA
     Dosage: 200MCG/5MCG/ TWO PUFFS TWICE DAILY
     Route: 055
     Dates: start: 201301
  2. DULERA [Suspect]
     Indication: CHRONIC OBSTRUCTIVE PULMONARY DISEASE
  3. SPIRIVA [Concomitant]

REACTIONS (6)
  - Hip arthroplasty [Recovering/Resolving]
  - Hypoaesthesia [Recovering/Resolving]
  - Groin pain [Recovering/Resolving]
  - Pain in extremity [Recovering/Resolving]
  - Arthritis [Recovering/Resolving]
  - Blood pressure decreased [Recovering/Resolving]
